FAERS Safety Report 17686305 (Version 1)
Quarter: 2020Q3

REPORT INFORMATION
  Report Type: Spontaneous
  Country: US (occurrence: US)
  Receive Date: 20200420
  Receipt Date: 20200420
  Transmission Date: 20201105
  Serious: Yes (Hospitalization)
  Sender: FDA-Public Use
  Company Number: US-EPIC PHARMA LLC-2020EPC00017

PATIENT
  Age: 91 Year
  Sex: Female

DRUGS (4)
  1. TEA TREE OIL. [Suspect]
     Active Substance: TEA TREE OIL
     Dosage: UNK
  2. AMLODIPINE [Suspect]
     Active Substance: AMLODIPINE BESYLATE
     Dosage: UNK
  3. AMLODIPINE [Suspect]
     Active Substance: AMLODIPINE BESYLATE
     Dosage: UNK
  4. UNSPECIFIED MEDICATION [Suspect]
     Active Substance: UNSPECIFIED INGREDIENT
     Dosage: UNK

REACTIONS (9)
  - Perfume sensitivity [Unknown]
  - Therapeutic product cross-reactivity [Unknown]
  - Vertigo [Unknown]
  - Hypersensitivity [Unknown]
  - Food allergy [Unknown]
  - Drug hypersensitivity [Unknown]
  - Illness [Unknown]
  - Rash [Unknown]
  - Reaction to excipient [Unknown]

NARRATIVE: CASE EVENT DATE: 2005
